FAERS Safety Report 4726172-7 (Version None)
Quarter: 2005Q3

REPORT INFORMATION
  Report Type: 
  Country: None (occurrence: None)
  Receive Date: 20050725
  Receipt Date: 20050714
  Transmission Date: 20060218
  Serious: Yes (Hospitalization, Other)
  Sender: FDA-Public Use
  Company Number: 05FRA0141

PATIENT
  Age: 55 Year
  Sex: Male

DRUGS (1)
  1. GLIADEL [Suspect]
     Dosage: 7.7MG/WAFER; 3 WAFERS
     Dates: start: 20050610

REACTIONS (2)
  - BLINDNESS CORTICAL [None]
  - DISEASE PROGRESSION [None]
